FAERS Safety Report 22154568 (Version 7)
Quarter: 2023Q4

REPORT INFORMATION
  Report Type: Spontaneous
  Country: CA (occurrence: CA)
  Receive Date: 20230330
  Receipt Date: 20231101
  Transmission Date: 20240110
  Serious: Yes (Other)
  Sender: FDA-Public Use
  Company Number: CA-PFIZER INC-202201310308

PATIENT
  Age: 82 Year
  Sex: Female

DRUGS (10)
  1. ABRILADA [Suspect]
     Active Substance: ADALIMUMAB-AFZB
     Indication: Rheumatoid arthritis
     Dosage: 40 MG, EVERY 2 WEEKS, PREFILLED PEN
     Route: 058
     Dates: start: 20220919, end: 2023
  2. ABRILADA [Suspect]
     Active Substance: ADALIMUMAB-AFZB
     Dosage: 40 MG, EVERY 2 WEEKS
     Route: 058
     Dates: start: 20221117
  3. ABRILADA [Suspect]
     Active Substance: ADALIMUMAB-AFZB
     Dosage: 30 MG, SUPPOSED TO RECEIVE 40 MG
     Route: 058
     Dates: start: 20221201
  4. ABRILADA [Suspect]
     Active Substance: ADALIMUMAB-AFZB
     Dosage: 40 MG, EVERY 2 WEEKS
     Route: 058
     Dates: start: 20230126
  5. ABRILADA [Suspect]
     Active Substance: ADALIMUMAB-AFZB
     Dosage: 40 MG, EVERY 2 WEEKS
     Route: 058
     Dates: start: 20230309
  6. ABRILADA [Suspect]
     Active Substance: ADALIMUMAB-AFZB
     Dosage: 40 MG, Q1 WEEK AND 6 DAYS
     Route: 058
     Dates: start: 20230322
  7. ABRILADA [Suspect]
     Active Substance: ADALIMUMAB-AFZB
     Dosage: 40 MG, EVERY 2 WEEK
     Route: 058
     Dates: start: 20230405, end: 2023
  8. ABRILADA [Suspect]
     Active Substance: ADALIMUMAB-AFZB
     Dosage: 40 MG, EVERY 2 WEEK
     Route: 058
     Dates: start: 20230627
  9. ABRILADA [Suspect]
     Active Substance: ADALIMUMAB-AFZB
     Dosage: 40 MG, 12 WEEKS AFTER LAST TREATMENT (PRESCRIBED TREATMENT ARE EVERY 2 WEEKS)
     Route: 058
     Dates: start: 20230919
  10. PREDNISONE [Concomitant]
     Active Substance: PREDNISONE
     Dosage: UNK, LOW DOSE

REACTIONS (22)
  - Fall [Unknown]
  - Sensory loss [Unknown]
  - Arthropathy [Unknown]
  - Walking aid user [Unknown]
  - Off label use [Unknown]
  - Incorrect dose administered [Unknown]
  - Fatigue [Not Recovered/Not Resolved]
  - Auditory disorder [Not Recovered/Not Resolved]
  - Visual impairment [Not Recovered/Not Resolved]
  - Decreased appetite [Not Recovered/Not Resolved]
  - Pain in extremity [Not Recovered/Not Resolved]
  - Psychiatric symptom [Unknown]
  - Muscle spasms [Not Recovered/Not Resolved]
  - Blood pressure systolic increased [Not Recovered/Not Resolved]
  - Infection [Unknown]
  - Alopecia [Unknown]
  - Pain [Not Recovered/Not Resolved]
  - Dysstasia [Unknown]
  - Sitting disability [Unknown]
  - Intentional dose omission [Unknown]
  - Inappropriate schedule of product administration [Unknown]
  - Off label use [Unknown]

NARRATIVE: CASE EVENT DATE: 20220101
